FAERS Safety Report 6367485-5 (Version None)
Quarter: 2009Q3

REPORT INFORMATION
  Report Type: 
  Country: None (occurrence: None)
  Receive Date: 20090915
  Receipt Date: 20090904
  Transmission Date: 20100115
  Serious: Yes (Other)
  Sender: FDA-Public Use
  Company Number: CHPA2009US15354

PATIENT
  Age: 48 Year
  Sex: Female
  Weight: 45.4 kg

DRUGS (1)
  1. NICOTINE [Suspect]
     Indication: SMOKING CESSATION THERAPY
     Dosage: 21 MG, QD, TRANSDERMAL
     Route: 062

REACTIONS (2)
  - INTRACRANIAL ANEURYSM [None]
  - NAUSEA [None]
